FAERS Safety Report 8341620-1 (Version None)
Quarter: 2012Q2

REPORT INFORMATION
  Report Type: 
  Country: None (occurrence: None)
  Receive Date: 20120507
  Receipt Date: 20120426
  Transmission Date: 20120825
  Serious: Yes (Other)
  Sender: FDA-Public Use
  Company Number: GB-JNJFOC-20120413318

PATIENT
  Age: 76 Year
  Sex: Female

DRUGS (2)
  1. REMICADE [Suspect]
     Indication: RHEUMATOID ARTHRITIS
     Route: 042
     Dates: start: 20041014, end: 20100917
  2. OTHER BIOLOGICS [Concomitant]
     Dates: start: 20101001

REACTIONS (1)
  - SKIN CANCER [None]
